FAERS Safety Report 25857044 (Version 3)
Quarter: 2025Q4

REPORT INFORMATION
  Report Type: Spontaneous
  Country: EU (occurrence: EU)
  Receive Date: 20250929
  Receipt Date: 20251014
  Transmission Date: 20260118
  Serious: Yes (Life-Threatening, Hospitalization, Other)
  Sender: SANDOZ
  Company Number: EU-PFIZER INC-202400329301

PATIENT
  Age: 18 Year
  Sex: Female
  Weight: 50 kg

DRUGS (25)
  1. AZACITIDINE [Suspect]
     Active Substance: AZACITIDINE
     Indication: Acute undifferentiated leukaemia
     Dosage: UNK
     Route: 065
  2. ALKERAN [Suspect]
     Active Substance: MELPHALAN
     Indication: Bone marrow conditioning regimen
     Dosage: UNK
     Route: 065
  3. AMIKACIN [Suspect]
     Active Substance: AMIKACIN
     Indication: Febrile neutropenia
     Dosage: UNK
     Route: 065
  4. AVIBACTAM SODIUM\CEFTAZIDIME [Suspect]
     Active Substance: AVIBACTAM SODIUM\CEFTAZIDIME
     Indication: Pseudomonas infection
     Dosage: UNK
     Route: 065
  5. CYCLOSPORINE [Suspect]
     Active Substance: CYCLOSPORINE
     Indication: Immunosuppressant drug therapy
     Dosage: UNK
     Route: 065
  6. COLISTIN SULFATE [Suspect]
     Active Substance: COLISTIN SULFATE
     Indication: Pseudomonas infection
     Dosage: UNK
     Route: 065
  7. CYCLOPHOSPHAMIDE [Suspect]
     Active Substance: CYCLOPHOSPHAMIDE
     Indication: Immunosuppressant drug therapy
     Dosage: UNK
     Route: 065
  8. CYTARABINE [Suspect]
     Active Substance: CYTARABINE
     Indication: Acute undifferentiated leukaemia
     Dosage: UNK
     Route: 065
  9. DAUNORUBICIN [Suspect]
     Active Substance: DAUNORUBICIN
     Indication: Acute undifferentiated leukaemia
     Dosage: UNK
     Route: 065
  10. FLUDARABINE [Suspect]
     Active Substance: FLUDARABINE PHOSPHATE
     Indication: Acute undifferentiated leukaemia
     Dosage: UNK (STARTED ON DAY 25)
     Route: 065
  11. FLUDARABINE [Suspect]
     Active Substance: FLUDARABINE PHOSPHATE
     Indication: Bone marrow conditioning regimen
  12. IDARUBICIN [Suspect]
     Active Substance: IDARUBICIN
     Indication: Acute undifferentiated leukaemia
     Dosage: UNK
     Route: 065
  13. LINEZOLID [Suspect]
     Active Substance: LINEZOLID
     Indication: Product used for unknown indication
     Dosage: UNK
     Route: 065
  14. MYCOPHENOLATE MOFETIL [Suspect]
     Active Substance: MYCOPHENOLATE MOFETIL
     Indication: Immunosuppressant drug therapy
     Dosage: UNK
     Route: 065
  15. MEROPENEM [Suspect]
     Active Substance: MEROPENEM
     Indication: Product used for unknown indication
     Dosage: UNK
     Route: 065
  16. PIPERACILLIN AND TAZOBACTAM [Suspect]
     Active Substance: PIPERACILLIN SODIUM\TAZOBACTAM SODIUM
     Indication: Febrile neutropenia
     Dosage: UNK
     Route: 065
  17. VANCOMYCIN [Suspect]
     Active Substance: VANCOMYCIN
     Indication: Febrile neutropenia
     Dosage: 500 MILLIGRAM, BID, STRENGTH-500MG
     Route: 042
  18. VANCOMYCIN [Suspect]
     Active Substance: VANCOMYCIN
     Indication: Pseudomonas infection
  19. VENETOCLAX [Suspect]
     Active Substance: VENETOCLAX
     Indication: Acute undifferentiated leukaemia
     Dosage: UNK (RECEIVED 2 CYCLES)
     Route: 065
  20. VENETOCLAX [Suspect]
     Active Substance: VENETOCLAX
     Indication: Radiotherapy
  21. CEFIDEROCOL [Concomitant]
     Active Substance: CEFIDEROCOL
     Indication: Pseudomonas infection
     Dosage: UNK
     Route: 065
  22. CILASTATIN\IMIPENEM\RELEBACTAM [Concomitant]
     Active Substance: CILASTATIN\IMIPENEM\RELEBACTAM
     Indication: Pseudomonas infection
     Dosage: UNK
     Route: 065
  23. DICLOFENAC [Concomitant]
     Active Substance: DICLOFENAC
     Indication: Analgesic therapy
     Dosage: UNK
     Route: 042
  24. FENTANYL [Concomitant]
     Active Substance: FENTANYL
     Indication: Analgesic therapy
     Dosage: UNK
     Route: 062
  25. FOSFOMYCIN [Concomitant]
     Active Substance: FOSFOMYCIN
     Indication: Febrile neutropenia
     Dosage: UNK
     Route: 065

REACTIONS (10)
  - Sepsis [Recovering/Resolving]
  - Pseudomonas infection [Recovered/Resolved]
  - Nephropathy toxic [Recovering/Resolving]
  - Renal failure [Recovering/Resolving]
  - Drug ineffective [Unknown]
  - Pathogen resistance [Recovered/Resolved]
  - Toxicity to various agents [Unknown]
  - Ototoxicity [Unknown]
  - Thrombocytopenia [Unknown]
  - Febrile neutropenia [Recovering/Resolving]
